FAERS Safety Report 5814238-X (Version None)
Quarter: 2008Q3

REPORT INFORMATION
  Report Type: 
  Country: None (occurrence: None)
  Receive Date: 20080717
  Receipt Date: 20080711
  Transmission Date: 20090109
  Serious: Yes (Other)
  Sender: FDA-Public Use
  Company Number: DE-AMGEN-UK292153

PATIENT
  Age: 42 Year
  Sex: Female

DRUGS (3)
  1. NEUPOGEN [Suspect]
     Indication: CHEMOTHERAPY
     Route: 058
     Dates: start: 20080627, end: 20080629
  2. DOCETAXEL [Concomitant]
  3. TRASTUZUMAB [Concomitant]

REACTIONS (1)
  - TACHYCARDIA [None]
